FAERS Safety Report 6582440-8 (Version None)
Quarter: 2010Q1

REPORT INFORMATION
  Report Type: 
  Country: None (occurrence: None)
  Receive Date: 20100216
  Receipt Date: 20100203
  Transmission Date: 20100710
  Serious: Yes (Other)
  Sender: FDA-Public Use
  Company Number: PHEH2010US01890

PATIENT
  Sex: Female

DRUGS (2)
  1. RECLAST [Suspect]
     Indication: OSTEOPOROSIS
     Dosage: 5 MG
     Dates: start: 20080101
  2. RECLAST [Suspect]
     Dosage: 5 MG
     Route: 042
     Dates: start: 20090101

REACTIONS (3)
  - BONE DENSITY DECREASED [None]
  - DRUG INEFFECTIVE [None]
  - OSTEOPENIA [None]
